FAERS Safety Report 5462413-9 (Version None)
Quarter: 2007Q3

REPORT INFORMATION
  Report Type: 
  Country: None (occurrence: None)
  Receive Date: 20070920
  Receipt Date: 20070723
  Transmission Date: 20080115
  Serious: No
  Sender: FDA-Public Use
  Company Number: A0665493A

PATIENT
  Age: 45 Year
  Sex: Female

DRUGS (2)
  1. ABREVA [Suspect]
     Dates: start: 20070715, end: 20070719
  2. NEOSPORIN [Concomitant]

REACTIONS (2)
  - APPLICATION SITE IRRITATION [None]
  - DRUG INEFFECTIVE [None]
